FAERS Safety Report 25003356 (Version 1)
Quarter: 2025Q1

REPORT INFORMATION
  Report Type: Spontaneous
  Country: US (occurrence: None)
  Receive Date: 20250221
  Receipt Date: 20250221
  Transmission Date: 20250409
  Serious: Yes (Death)
  Sender: FDA-CTU
  Company Number: None

PATIENT
  Age: 77 Year
  Sex: Female
  Weight: 56.7 kg

DRUGS (1)
  1. CREON [Suspect]
     Active Substance: PANCRELIPASE AMYLASE\PANCRELIPASE LIPASE\PANCRELIPASE PROTEASE
     Indication: Pancreatic carcinoma
     Dosage: OTHER QUANTITY : 48,000 UNITS;?FREQUENCY : 3 TIMES A DAY;?
     Route: 048
     Dates: start: 20240418

REACTIONS (2)
  - Pancreatic carcinoma [None]
  - Malignant neoplasm progression [None]

NARRATIVE: CASE EVENT DATE: 20250215
